FAERS Safety Report 21944348 (Version 2)
Quarter: 2023Q2

REPORT INFORMATION
  Report Type: Other
  Country: None (occurrence: FR)
  Receive Date: 20230202
  Receipt Date: 20230526
  Transmission Date: 20230721
  Serious: Yes (Life-Threatening, Hospitalization, Other)
  Sender: FDA-Public Use
  Company Number: FR-Spectra Medical Devices, LLC-2137395

PATIENT
  Age: 2 Month
  Sex: Male
  Weight: 5 kg

DRUGS (1)
  1. LIDOCAINE HYDROCHLORIDE [Suspect]
     Active Substance: LIDOCAINE HYDROCHLORIDE
     Indication: Anaesthesia
     Route: 065

REACTIONS (7)
  - Seizure [Recovered/Resolved]
  - Respiratory distress [Recovered/Resolved]
  - Coma [Recovered/Resolved]
  - Circulatory collapse [Recovered/Resolved]
  - Vomiting [Recovered/Resolved]
  - Overdose [Unknown]
  - Eye movement disorder [Recovered/Resolved]
